FAERS Safety Report 11966342 (Version 2)
Quarter: 2016Q1

REPORT INFORMATION
  Report Type: Spontaneous
  Country: SK (occurrence: SK)
  Receive Date: 20160127
  Receipt Date: 20160216
  Transmission Date: 20160526
  Serious: Yes (Other)
  Sender: FDA-Public Use
  Company Number: SK-JNJFOC-20160116678

PATIENT

DRUGS (6)
  1. IBRUTINIB [Suspect]
     Active Substance: IBRUTINIB
     Indication: LYMPHOCYTIC LEUKAEMIA
     Dosage: TOTAL 12 CYCLES
     Route: 048
  2. BENDAMUSTINE HYDROCHLORIDE [Suspect]
     Active Substance: BENDAMUSTINE HYDROCHLORIDE
     Indication: CHRONIC LYMPHOCYTIC LEUKAEMIA REFRACTORY
     Dosage: 6 CYCLES
     Route: 042
  3. RITUXIMAB [Suspect]
     Active Substance: RITUXIMAB
     Indication: LYMPHOCYTIC LEUKAEMIA
     Route: 065
  4. RITUXIMAB [Suspect]
     Active Substance: RITUXIMAB
     Indication: CHRONIC LYMPHOCYTIC LEUKAEMIA REFRACTORY
     Route: 065
  5. IBRUTINIB [Suspect]
     Active Substance: IBRUTINIB
     Indication: CHRONIC LYMPHOCYTIC LEUKAEMIA REFRACTORY
     Dosage: TOTAL 12 CYCLES
     Route: 048
  6. BENDAMUSTINE HYDROCHLORIDE [Suspect]
     Active Substance: BENDAMUSTINE HYDROCHLORIDE
     Indication: LYMPHOCYTIC LEUKAEMIA
     Dosage: 6 CYCLES
     Route: 042

REACTIONS (11)
  - Asthenia [Unknown]
  - Febrile neutropenia [Unknown]
  - Lymphocytosis [Unknown]
  - Diarrhoea [Unknown]
  - Dehydration [Unknown]
  - Upper respiratory tract infection [Unknown]
  - Skin disorder [Unknown]
  - Neoplasm malignant [Unknown]
  - Nausea [Unknown]
  - Tumour lysis syndrome [Unknown]
  - Cellulitis [Unknown]
